FAERS Safety Report 16311478 (Version 1)
Quarter: 2019Q2

REPORT INFORMATION
  Report Type: Spontaneous
  Country: GB (occurrence: GB)
  Receive Date: 20190514
  Receipt Date: 20190514
  Transmission Date: 20190711
  Serious: Yes (Hospitalization, Other)
  Sender: FDA-Public Use
  Company Number: GB-ALLERGAN-1920048US

PATIENT
  Sex: Male
  Weight: 17 kg

DRUGS (1)
  1. ATROPINE UNK [Suspect]
     Active Substance: ATROPINE SULFATE
     Indication: EYE DISORDER
     Dosage: 1 GTT, QD
     Route: 047
     Dates: start: 20190421, end: 20190421

REACTIONS (4)
  - Dysphagia [Recovered/Resolved]
  - Cough [Recovered/Resolved]
  - Hypersensitivity [Recovered/Resolved]
  - Dyspnoea [Recovered/Resolved]

NARRATIVE: CASE EVENT DATE: 20190421
